FAERS Safety Report 5792555-X (Version None)
Quarter: 2008Q2

REPORT INFORMATION
  Report Type: 
  Country: None (occurrence: None)
  Receive Date: 20080624
  Receipt Date: 20080613
  Transmission Date: 20081010
  Serious: Yes (Life-Threatening, Hospitalization, Disabling)
  Sender: FDA-Public Use
  Company Number: 2008-01565

PATIENT
  Age: 58 Year
  Sex: Male
  Weight: 90 kg

DRUGS (11)
  1. VELCADE [Suspect]
     Indication: MULTIPLE MYELOMA
     Dosage: 2.8 MG, INTRAVENOUS
     Route: 042
     Dates: start: 20080228, end: 20080425
  2. DOXORUBICIN HCL [Suspect]
     Indication: MULTIPLE MYELOMA
     Dosage: 19 MG, INTRAVENOUS
     Route: 042
     Dates: start: 20080225, end: 20080423
  3. LIPITOR [Concomitant]
  4. DIFLUCAN [Concomitant]
  5. DEXAMETHASONE TAB [Suspect]
     Indication: MULTIPLE MYELOMA
     Dosage: 40 MG, ORAL
     Route: 048
     Dates: start: 20080225, end: 20080422
  6. APD(PAMIDRONATE DISODIUM) [Suspect]
     Indication: MULTIPLE MYELOMA
     Dosage: 30 MG, INTRAVENOUS
     Route: 042
     Dates: start: 20080225, end: 20080423
  7. CIPROFLOXACIN [Concomitant]
  8. PLAVIX [Concomitant]
  9. PANTOPRAZOLE SODIUM [Concomitant]
  10. EMCOR (BISOPROLOL FUMARATE) [Concomitant]
  11. ERYTHROPOIETIN (ERYTHROPOIETIN) [Concomitant]

REACTIONS (5)
  - CEREBRAL HAEMORRHAGE [None]
  - CEREBRAL INFARCTION [None]
  - EPILEPSY [None]
  - HAEMATOMA [None]
  - HYPERTENSIVE ENCEPHALOPATHY [None]
